FAERS Safety Report 4931788-9 (Version None)
Quarter: 2006Q1

REPORT INFORMATION
  Report Type: 
  Country: None (occurrence: None)
  Receive Date: 20060106
  Receipt Date: 20051114
  Transmission Date: 20060701
  Serious: No
  Sender: FDA-Public Use
  Company Number: 200512601BWH

PATIENT
  Age: 35 Year
  Sex: Male

DRUGS (1)
  1. LEVITRA [Suspect]
     Indication: SEXUAL DYSFUNCTION
     Dosage: ORAL
     Route: 048
     Dates: start: 20051001

REACTIONS (2)
  - ERECTION INCREASED [None]
  - PARAESTHESIA OF GENITAL MALE [None]
